FAERS Safety Report 7898674-6 (Version None)
Quarter: 2011Q4

REPORT INFORMATION
  Report Type: 
  Country: None (occurrence: None)
  Receive Date: 20111107
  Receipt Date: 20111019
  Transmission Date: 20120403
  Serious: No
  Sender: FDA-Public Use
  Company Number: US-ROXANE LABORATORIES, INC.-2011-RO-01521RO

PATIENT
  Sex: Female

DRUGS (1)
  1. FUROSEMIDE [Suspect]
     Dosage: 40 MG
     Dates: start: 20110201

REACTIONS (2)
  - DRUG INEFFECTIVE [None]
  - DRUG ADMINISTRATION ERROR [None]
